FAERS Safety Report 11360407 (Version 1)
Quarter: 2015Q3

REPORT INFORMATION
  Report Type: Spontaneous
  Country: FI (occurrence: FI)
  Receive Date: 20150810
  Receipt Date: 20150810
  Transmission Date: 20151125
  Serious: No
  Sender: FDA-Public Use
  Company Number: FI-JNJFOC-20150803306

PATIENT
  Sex: Female

DRUGS (1)
  1. DUROGESIC [Suspect]
     Active Substance: FENTANYL
     Indication: PAIN
     Route: 062

REACTIONS (4)
  - Wrong technique in product usage process [Unknown]
  - Condition aggravated [Unknown]
  - Drug level fluctuating [Unknown]
  - Product quality issue [Unknown]
